FAERS Safety Report 7422657-3 (Version None)
Quarter: 2011Q2

REPORT INFORMATION
  Report Type: 
  Country: None (occurrence: None)
  Receive Date: 20110419
  Receipt Date: 20110412
  Transmission Date: 20111010
  Serious: Yes (Other)
  Sender: FDA-Public Use
  Company Number: NZ-EISAI INC-E2020-08958-SPO-NZ

PATIENT
  Age: 76 Year
  Sex: Female

DRUGS (3)
  1. ARICEPT [Suspect]
     Indication: OFF LABEL USE
     Route: 048
  2. ARICEPT [Suspect]
     Route: 048
  3. METOPROLOL [Concomitant]
     Route: 048

REACTIONS (1)
  - BIPOLAR DISORDER [None]
